FAERS Safety Report 6505495-5 (Version None)
Quarter: 2009Q4

REPORT INFORMATION
  Report Type: 
  Country: None (occurrence: None)
  Receive Date: 20091218
  Receipt Date: 20091208
  Transmission Date: 20100525
  Serious: Yes (Death, Other)
  Sender: FDA-Public Use
  Company Number: CA-PFIZER INC-2009307905

PATIENT
  Age: 50 Year
  Sex: Female

DRUGS (1)
  1. SUTENT [Suspect]
     Indication: BONE SARCOMA
     Dosage: 37.5 MG, 1X/DAY
     Route: 048
     Dates: start: 20090916, end: 20091001

REACTIONS (7)
  - DEATH [None]
  - DIARRHOEA [None]
  - FATIGUE [None]
  - HYPOALBUMINAEMIA [None]
  - MUCOSAL INFLAMMATION [None]
  - PAIN [None]
  - RESPIRATORY DISTRESS [None]
